FAERS Safety Report 21164113 (Version 1)
Quarter: 2022Q3

REPORT INFORMATION
  Report Type: Spontaneous
  Country: HR (occurrence: HR)
  Receive Date: 20220803
  Receipt Date: 20220803
  Transmission Date: 20221027
  Serious: Yes (Other)
  Sender: FDA-Public Use
  Company Number: None

PATIENT
  Age: 62 Year
  Sex: Female

DRUGS (2)
  1. QUETIAPINE [Suspect]
     Active Substance: QUETIAPINE
     Indication: Product used for unknown indication
     Dosage: 1 BLISTER PACK, FREQUENCY TIME : 1 DAYS, THERAPY DURATION : 1 DAYS
     Route: 065
     Dates: start: 20220607, end: 20220607
  2. LAMOTRIGINE [Suspect]
     Active Substance: LAMOTRIGINE
     Indication: Product used for unknown indication
     Dosage: 3 BLISTER PACKS, UNIT DOSE : 4500 MG ,  , FREQUENCY TIME : 1 DAYS, THERAPY DURATION : 1 DAYS
     Route: 065
     Dates: start: 20220607, end: 20220607

REACTIONS (5)
  - Hypokalaemia [Unknown]
  - Vomiting [Unknown]
  - Suicide attempt [Unknown]
  - Somnolence [Unknown]
  - Intentional overdose [Unknown]

NARRATIVE: CASE EVENT DATE: 20220607
